FAERS Safety Report 20202830 (Version 1)
Quarter: 2021Q4

REPORT INFORMATION
  Report Type: Spontaneous
  Country: US (occurrence: US)
  Receive Date: 20211218
  Receipt Date: 20211218
  Transmission Date: 20220303
  Serious: No
  Sender: FDA-Public Use
  Company Number: US-SA-SAC20211214001198

PATIENT
  Age: 79 Year
  Sex: Male

DRUGS (10)
  1. DUPIXENT [Suspect]
     Active Substance: DUPILUMAB
     Indication: Dermatitis atopic
     Dosage: 300 MG
     Route: 058
  2. ALLEGRA ALLERGY [Concomitant]
     Active Substance: FEXOFENADINE HYDROCHLORIDE
  3. BREO ELLIPTA [Concomitant]
     Active Substance: FLUTICASONE FUROATE\VILANTEROL TRIFENATATE
  4. FLOMAX [Concomitant]
     Active Substance: TAMSULOSIN HYDROCHLORIDE
     Dosage: 04MG
  5. CHILDREN^S FLONASE SENSIMIST ALLERGY RELIEF [Concomitant]
     Dosage: 50MCG/AC
  6. GLUCOSAMINE [Concomitant]
     Active Substance: GLUCOSAMINE
  7. MONTELUKAST [Concomitant]
     Active Substance: MONTELUKAST SODIUM
     Dosage: 10 MG
  8. PRAVASTATIN [Concomitant]
     Active Substance: PRAVASTATIN
  9. TRIAMCINOLONE [Concomitant]
     Active Substance: TRIAMCINOLONE
     Dosage: 0.147 MG
  10. SARNA [CAMPHOR;MENTHOL] [Concomitant]
     Dosage: 0.5-0.5%

REACTIONS (3)
  - Acne [Not Recovered/Not Resolved]
  - Dizziness [Not Recovered/Not Resolved]
  - Visual impairment [Not Recovered/Not Resolved]
